FAERS Safety Report 14617246 (Version 2)
Quarter: 2018Q2

REPORT INFORMATION
  Report Type: Report from Study
  Country: None (occurrence: US)
  Receive Date: 20180309
  Receipt Date: 20180413
  Transmission Date: 20180711
  Serious: Yes (Other)
  Sender: FDA-Public Use
  Company Number: US-ABBVIE-18K-163-2277894-00

PATIENT
  Sex: Female

DRUGS (2)
  1. HUMIRA [Suspect]
     Active Substance: ADALIMUMAB
     Indication: COLITIS ULCERATIVE
     Route: 058
  2. HUMIRA [Suspect]
     Active Substance: ADALIMUMAB
     Indication: CROHN^S DISEASE

REACTIONS (10)
  - Diarrhoea [Not Recovered/Not Resolved]
  - Iron deficiency [Recovering/Resolving]
  - Depression [Unknown]
  - Calcium deficiency [Recovering/Resolving]
  - Stress [Not Recovered/Not Resolved]
  - Polyp [Recovering/Resolving]
  - Muscle atrophy [Unknown]
  - Vitamin B12 deficiency [Recovering/Resolving]
  - Anxiety [Not Recovered/Not Resolved]
  - Headache [Recovered/Resolved]
